FAERS Safety Report 4556653-0 (Version None)
Quarter: 2005Q1

REPORT INFORMATION
  Report Type: 
  Country: None (occurrence: None)
  Receive Date: 20050118
  Receipt Date: 20050103
  Transmission Date: 20050727
  Serious: Yes (Hospitalization, Other)
  Sender: FDA-Public Use
  Company Number: 2004107057

PATIENT
  Age: 27 Month
  Sex: Female
  Weight: 11.3399 kg

DRUGS (2)
  1. ZYRTEC [Suspect]
     Indication: HYPERSENSITIVITY
     Dosage: 3.75 MG (3.75 MG, 1 IN 1 D), ORAL
     Route: 048
     Dates: start: 20030630, end: 20041207
  2. MONTELUKAST SODIUM [Concomitant]

REACTIONS (5)
  - EATING DISORDER [None]
  - EYE ROLLING [None]
  - FALL [None]
  - LETHARGY [None]
  - SOMNOLENCE [None]
